FAERS Safety Report 7393094-5 (Version None)
Quarter: 2011Q2

REPORT INFORMATION
  Report Type: 
  Country: None (occurrence: None)
  Receive Date: 20110404
  Receipt Date: 20110308
  Transmission Date: 20111010
  Serious: No
  Sender: FDA-Public Use
  Company Number: US-B.I. PHARMACEUTICALS,INC./RIDGEFIELD-2011-BP-07982BP

PATIENT
  Age: 82 Year
  Sex: Male

DRUGS (3)
  1. PRADAXA [Suspect]
     Indication: ATRIAL FIBRILLATION
     Dosage: 300 MG
     Route: 048
     Dates: start: 20110306
  2. MORPHINE [Concomitant]
     Indication: BACK PAIN
  3. LASIX [Concomitant]
     Indication: OEDEMA PERIPHERAL

REACTIONS (3)
  - DYSPNOEA [None]
  - FEELING ABNORMAL [None]
  - DEPRESSION [None]
